FAERS Safety Report 4977926-3 (Version None)
Quarter: 2006Q2

REPORT INFORMATION
  Report Type: 
  Country: None (occurrence: None)
  Receive Date: 20060420
  Receipt Date: 20051122
  Transmission Date: 20061013
  Serious: Yes (Hospitalization, Disabling)
  Sender: FDA-Public Use
  Company Number: US-MERCK-0511USA03947

PATIENT
  Age: 30 Year
  Sex: Female
  Weight: 75 kg

DRUGS (1)
  1. VIOXX [Suspect]
     Indication: AFTERBIRTH PAIN
     Route: 048
     Dates: start: 20001215, end: 20001221

REACTIONS (16)
  - ABDOMINAL PAIN LOWER [None]
  - ABDOMINAL SYMPTOM [None]
  - AMNESIA [None]
  - ANXIETY [None]
  - BRAIN DAMAGE [None]
  - CERUMEN IMPACTION [None]
  - DEPRESSION [None]
  - HAEMORRHAGIC STROKE [None]
  - HEADACHE [None]
  - PARALYSIS [None]
  - PLEURITIC PAIN [None]
  - POSTPARTUM HAEMORRHAGE [None]
  - RASH [None]
  - SYNCOPE [None]
  - TUBAL LIGATION [None]
  - VISUAL ACUITY REDUCED [None]
